FAERS Safety Report 4912664-4 (Version None)
Quarter: 2006Q1

REPORT INFORMATION
  Report Type: 
  Country: None (occurrence: None)
  Receive Date: 20060113
  Receipt Date: 20050323
  Transmission Date: 20060701
  Serious: Yes (Other)
  Sender: FDA-Public Use
  Company Number: HQWYE363825MAR05

PATIENT
  Age: 56 Year
  Sex: Female
  Weight: 81.72 kg

DRUGS (4)
  1. PREMPHASE (PREMARIN;CYCRIN 14/14) [Suspect]
     Indication: MENOPAUSE
     Dosage: 0.625 MG/2.5 MG, ORAL
     Route: 048
     Dates: start: 19980101
  2. MEDROXYPROGESTERONE [Suspect]
     Indication: MENOPAUSE
     Dosage: 2.5 MG, ORAL
     Route: 048
     Dates: start: 20000101
  3. PROVERA [Suspect]
     Indication: MENOPAUSE
     Dosage: ORAL
     Route: 048
     Dates: start: 20000101, end: 20010101
  4. VIVELLE [Suspect]
     Indication: MENOPAUSE
     Dosage: 0.375 PATCH, TRANSDERMAL
     Route: 062
     Dates: start: 20000101

REACTIONS (1)
  - BREAST CANCER [None]
